FAERS Safety Report 5822881-7 (Version None)
Quarter: 2008Q3

REPORT INFORMATION
  Report Type: 
  Country: None (occurrence: None)
  Receive Date: 20080724
  Receipt Date: 20080724
  Transmission Date: 20090109
  Serious: Yes (Hospitalization)
  Sender: FDA-Public Use
  Company Number: None

PATIENT
  Age: 66 Year
  Sex: Female
  Weight: 87.0906 kg

DRUGS (1)
  1. MORPHINE SULFATE [Suspect]
     Indication: NEPHROLITHIASIS
     Dosage: 1 EVERY 12 HR
     Dates: start: 20080609, end: 20080619

REACTIONS (9)
  - CONFUSIONAL STATE [None]
  - DISTURBANCE IN ATTENTION [None]
  - DYSPNOEA [None]
  - HEADACHE [None]
  - MALAISE [None]
  - PALPITATIONS [None]
  - PHARMACEUTICAL PRODUCT COMPLAINT [None]
  - RASH [None]
  - VOMITING [None]
